FAERS Safety Report 14141373 (Version 2)
Quarter: 2017Q4

REPORT INFORMATION
  Report Type: Spontaneous
  Country: JP (occurrence: JP)
  Receive Date: 20171030
  Receipt Date: 20171106
  Transmission Date: 20180321
  Serious: Yes (Other)
  Sender: FDA-Public Use
  Company Number: JP-SUN PHARMACEUTICAL INDUSTRIES LTD-2017RR-153359

PATIENT
  Sex: Male

DRUGS (6)
  1. CETUXIMAB. [Suspect]
     Active Substance: CETUXIMAB
     Dosage: 400 MG/M2, INITIAL DOSE
     Route: 065
     Dates: start: 2014
  2. TICLOPIDINE HYDROCHLORIDE. [Concomitant]
     Active Substance: TICLOPIDINE HYDROCHLORIDE
     Indication: ANTIPLATELET THERAPY
     Dosage: 100 MG, DAILY
     Route: 065
  3. ACETYLSALICYLIC ACID [Concomitant]
     Active Substance: ASPIRIN
     Indication: ANTIPLATELET THERAPY
     Dosage: 100 MG, DAILY
     Route: 065
  4. CARBOPLATIN. [Suspect]
     Active Substance: CARBOPLATIN
     Indication: METASTATIC SQUAMOUS CELL CARCINOMA
     Dosage: AREA UNDER THE CURVE, 5 MG/ML/MIN; 1-H IV INFUSION ON DAY 1
     Route: 042
     Dates: start: 2014
  5. CETUXIMAB. [Suspect]
     Active Substance: CETUXIMAB
     Indication: METASTATIC SQUAMOUS CELL CARCINOMA
     Dosage: 250 MG/M2, SUBSEQUENT WEEKLY DOSES
     Route: 065
     Dates: start: 2014
  6. FLUOROURACIL. [Suspect]
     Active Substance: FLUOROURACIL
     Indication: METASTATIC SQUAMOUS CELL CARCINOMA
     Dosage: 1000 MG/M2, PER DAY FOR 4 DAYS
     Route: 065
     Dates: start: 2014

REACTIONS (4)
  - Arterial thrombosis [Unknown]
  - Cardiac ventricular thrombosis [Recovered/Resolved]
  - Disease progression [Unknown]
  - Drug ineffective [Unknown]
